FAERS Safety Report 7388782-0 (Version None)
Quarter: 2011Q2

REPORT INFORMATION
  Report Type: 
  Country: None (occurrence: None)
  Receive Date: 20110401
  Receipt Date: 20110401
  Transmission Date: 20111010
  Serious: No
  Sender: FDA-Public Use
  Company Number: None

PATIENT
  Age: 24 Year
  Sex: Female
  Weight: 86.1834 kg

DRUGS (1)
  1. IV PREP PADS SMITH + NEPHEW/ TRIAD GROUP [Suspect]
     Indication: MEDICAL DEVICE IMPLANTATION
     Dosage: 1 PAD 3 DAYS TOP
     Route: 061
     Dates: start: 20110225, end: 20110330

REACTIONS (3)
  - INFUSION SITE REACTION [None]
  - APPLICATION SITE REACTION [None]
  - PAIN [None]
